FAERS Safety Report 5348570-3 (Version None)
Quarter: 2007Q2

REPORT INFORMATION
  Report Type: 
  Country: None (occurrence: None)
  Receive Date: 20070605
  Receipt Date: 20070522
  Transmission Date: 20071010
  Serious: Yes (Life-Threatening, Other)
  Sender: FDA-Public Use
  Company Number: 07H-163-0312678-00

PATIENT
  Age: 7 Year
  Sex: Female

DRUGS (2)
  1. HEPARIN SODIUM INJECTION [Suspect]
     Indication: CENTRAL VENOUS CATHETERISATION
     Dosage: ONCE, PICC LINE
  2. ANTIBIOTICS (ANTIBIOTICS) [Concomitant]

REACTIONS (1)
  - ANAPHYLACTIC REACTION [None]
